FAERS Safety Report 18403621 (Version 1)
Quarter: 2020Q4

REPORT INFORMATION
  Report Type: Spontaneous
  Country: US (occurrence: US)
  Receive Date: 20201019
  Receipt Date: 20201019
  Transmission Date: 20210114
  Serious: Yes (Disabling)
  Sender: FDA-Public Use
  Company Number: None

PATIENT
  Age: 37 Year
  Sex: Female
  Weight: 51.75 kg

DRUGS (2)
  1. CVS MEDICATED HEAT [Suspect]
     Active Substance: CAPSICUM
     Indication: BACK PAIN
     Route: 062
     Dates: start: 20201018, end: 20201018
  2. MULTIVITAMIN [Concomitant]
     Active Substance: VITAMINS

REACTIONS (2)
  - Application site reaction [None]
  - Product use complaint [None]

NARRATIVE: CASE EVENT DATE: 20201018
